FAERS Safety Report 17477955 (Version 1)
Quarter: 2020Q1

REPORT INFORMATION
  Report Type: Spontaneous
  Country: US (occurrence: US)
  Receive Date: 20200228
  Receipt Date: 20200228
  Transmission Date: 20200409
  Serious: No
  Sender: FDA-Public Use
  Company Number: US-SA-2020SA051614

PATIENT
  Age: 14 Year
  Sex: Male

DRUGS (7)
  1. ALL DAY ALLERGY [Concomitant]
     Active Substance: CETIRIZINE HYDROCHLORIDE
  2. FLUOCINONIDE. [Concomitant]
     Active Substance: FLUOCINONIDE
  3. PROAIR [FLUTICASONE PROPIONATE] [Concomitant]
     Active Substance: FLUTICASONE PROPIONATE
  4. DUPIXENT [Suspect]
     Active Substance: DUPILUMAB
     Indication: DERMATITIS ATOPIC
     Dosage: 300 MG, QOW
     Route: 058
     Dates: start: 20191101, end: 201912
  5. PULMICORT TURBUHALER [Concomitant]
     Active Substance: BUDESONIDE
  6. ZYRTEC [Concomitant]
     Active Substance: CETIRIZINE HYDROCHLORIDE
  7. MUPIROCIN. [Concomitant]
     Active Substance: MUPIROCIN

REACTIONS (1)
  - Dermatitis atopic [Unknown]
